FAERS Safety Report 15740188 (Version 1)
Quarter: 2018Q4

REPORT INFORMATION
  Report Type: Spontaneous
  Country: US (occurrence: US)
  Receive Date: 20181204
  Receipt Date: 20181204
  Transmission Date: 20190205
  Serious: No
  Sender: FDA-Public Use
  Company Number: None

PATIENT
  Age: 59 Year
  Sex: Female

DRUGS (1)
  1. TADALAFIL TAB 20MG [Suspect]
     Active Substance: TADALAFIL
     Route: 048
     Dates: start: 20180924

REACTIONS (8)
  - Swelling face [None]
  - Disturbance in attention [None]
  - Product substitution issue [None]
  - Insomnia [None]
  - Nasal congestion [None]
  - Headache [None]
  - Auditory disorder [None]
  - Fatigue [None]

NARRATIVE: CASE EVENT DATE: 20180924
